FAERS Safety Report 4762772-6 (Version None)
Quarter: 2005Q3

REPORT INFORMATION
  Report Type: 
  Country: None (occurrence: None)
  Receive Date: 20050907
  Receipt Date: 20050830
  Transmission Date: 20060218
  Serious: Yes (Hospitalization)
  Sender: FDA-Public Use
  Company Number: CA-MERCK-0508CAN00208

PATIENT
  Sex: Male

DRUGS (2)
  1. VIOXX [Suspect]
     Indication: OSTEOARTHRITIS
     Route: 048
     Dates: start: 20020101
  2. TAMSULOSIN HYDROCHLORIDE [Concomitant]
     Indication: BLOOD PRESSURE
     Route: 065

REACTIONS (1)
  - MYOCARDIAL INFARCTION [None]
